FAERS Safety Report 24385699 (Version 5)
Quarter: 2024Q4

REPORT INFORMATION
  Report Type: Spontaneous
  Country: US (occurrence: US)
  Receive Date: 20241001
  Receipt Date: 20241224
  Transmission Date: 20250114
  Serious: Yes (Hospitalization, Other)
  Sender: PFIZER
  Company Number: US-PFIZER INC-PV202400077888

PATIENT
  Age: 80 Year
  Sex: Female

DRUGS (1)
  1. TUKYSA [Suspect]
     Active Substance: TUCATINIB
     Indication: Breast cancer female
     Dosage: 1 TABLET TWICE A DAY/2 TIMES A DAY

REACTIONS (4)
  - Pharyngo-oesophageal diverticulum [Unknown]
  - Pneumonia [Unknown]
  - Off label use [Unknown]
  - Infection [Unknown]
